FAERS Safety Report 4308289-4 (Version None)
Quarter: 2004Q1

REPORT INFORMATION
  Report Type: 
  Country: None (occurrence: None)
  Receive Date: 20040301
  Receipt Date: 20031107
  Transmission Date: 20041129
  Serious: No
  Sender: FDA-Public Use
  Company Number: US-BRISTOL-MYERS SQUIBB COMPANY-12430781

PATIENT
  Age: 30 Year
  Sex: Male
  Weight: 118 kg

DRUGS (1)
  1. GLUCOPHAGE [Suspect]
     Indication: DIABETES MELLITUS
     Dosage: 125/250MG TWO TABLETS DAILY
     Route: 048
     Dates: start: 20031106

REACTIONS (2)
  - BLOOD GLUCOSE INCREASED [None]
  - PAIN IN EXTREMITY [None]
